FAERS Safety Report 6727947-5 (Version None)
Quarter: 2010Q2

REPORT INFORMATION
  Report Type: 
  Country: None (occurrence: None)
  Receive Date: 20100512
  Receipt Date: 20100120
  Transmission Date: 20101027
  Serious: No
  Sender: FDA-Public Use
  Company Number: 1000011383

PATIENT
  Age: 70 Year
  Sex: Female

DRUGS (8)
  1. SAVELLA [Suspect]
     Indication: FIBROMYALGIA
     Dosage: 12.5 MG (12.5 MG,1 IN 1 D),ORAL; 25 MG (12.5,2 IN 1 D),ORAL;50 MG (25 MG,2 IN 1D),ORAL
     Route: 048
     Dates: start: 20090101, end: 20090101
  2. SAVELLA [Suspect]
     Indication: FIBROMYALGIA
     Dosage: 12.5 MG (12.5 MG,1 IN 1 D),ORAL; 25 MG (12.5,2 IN 1 D),ORAL;50 MG (25 MG,2 IN 1D),ORAL
     Route: 048
     Dates: start: 20090101, end: 20090101
  3. SAVELLA [Suspect]
     Indication: FIBROMYALGIA
     Dosage: 12.5 MG (12.5 MG,1 IN 1 D),ORAL; 25 MG (12.5,2 IN 1 D),ORAL;50 MG (25 MG,2 IN 1D),ORAL
     Route: 048
     Dates: start: 20090101, end: 20090101
  4. SAVELLA [Suspect]
     Indication: FIBROMYALGIA
     Dosage: 100 MG (50 MG,2 IN 1 D),ORAL; (2 IN 1 D)
     Dates: start: 20090101, end: 20090101
  5. SAVELLA [Suspect]
     Indication: FIBROMYALGIA
     Dosage: 100 MG (50 MG,2 IN 1 D),ORAL; (2 IN 1 D)
     Dates: start: 20090101
  6. ATENOLOL [Concomitant]
  7. VERAPAMIL [Concomitant]
  8. SIMVASTATIN [Concomitant]

REACTIONS (3)
  - ASPARTATE AMINOTRANSFERASE INCREASED [None]
  - HOT FLUSH [None]
  - TACHYCARDIA [None]
